FAERS Safety Report 10866471 (Version 1)
Quarter: 2015Q1

REPORT INFORMATION
  Report Type: Spontaneous
  Country: RO (occurrence: RO)
  Receive Date: 20150225
  Receipt Date: 20150225
  Transmission Date: 20150721
  Serious: Yes (Hospitalization)
  Sender: FDA-Public Use
  Company Number: RO-009507513-1502ROM010149

PATIENT
  Age: 44 Year
  Sex: Female
  Weight: 65 kg

DRUGS (3)
  1. ASMANEX [Suspect]
     Active Substance: MOMETASONE FUROATE
     Indication: ASTHMA
     Dosage: 400 MICROGRAM, QD
     Route: 055
     Dates: start: 20150128, end: 20150131
  2. MONTELUKAST SODIUM. [Concomitant]
     Active Substance: MONTELUKAST SODIUM
     Indication: ASTHMA
     Dosage: 10 MG, QD
     Route: 048
  3. DESLORATADINE. [Concomitant]
     Active Substance: DESLORATADINE
     Indication: ASTHMA
     Dosage: 5 MG, QD
     Route: 048

REACTIONS (4)
  - Generalised oedema [Recovered/Resolved]
  - Dysphagia [Recovered/Resolved]
  - Tongue oedema [Recovered/Resolved]
  - Laryngeal oedema [Recovered/Resolved]

NARRATIVE: CASE EVENT DATE: 20150130
